FAERS Safety Report 7220040-7 (Version None)
Quarter: 2011Q1

REPORT INFORMATION
  Report Type: 
  Country: None (occurrence: None)
  Receive Date: 20110111
  Receipt Date: 20110105
  Transmission Date: 20110831
  Serious: Yes (Other)
  Sender: FDA-Public Use
  Company Number: A0873837A

PATIENT
  Sex: Female

DRUGS (8)
  1. DIOVOL [Concomitant]
     Route: 065
  2. PERINDOPRIL ERBUMINE [Concomitant]
     Route: 065
  3. OXYBUTYNIN [Concomitant]
     Route: 065
  4. DIVALPROEX SODIUM [Concomitant]
     Route: 065
  5. ATIVAN [Concomitant]
     Route: 065
  6. EFFEXOR [Concomitant]
     Route: 065
  7. XELODA [Concomitant]
     Dosage: 1200MG UNKNOWN
     Route: 048
  8. TYKERB [Suspect]
     Dosage: 1250MG PER DAY
     Route: 048
     Dates: start: 20100511, end: 20101213

REACTIONS (4)
  - MUCOSAL INFLAMMATION [None]
  - DIARRHOEA [None]
  - BREAST CANCER METASTATIC [None]
  - RASH [None]
